FAERS Safety Report 14659749 (Version 2)
Quarter: 2018Q2

REPORT INFORMATION
  Report Type: Report from Study
  Country: US (occurrence: US)
  Receive Date: 20180320
  Receipt Date: 20180413
  Transmission Date: 20180711
  Serious: Yes (Death, Other)
  Sender: FDA-Public Use
  Company Number: US-GILEAD-2018-0327796

PATIENT
  Age: 66 Year
  Sex: Male

DRUGS (8)
  1. ZOCOR [Concomitant]
     Active Substance: SIMVASTATIN
  2. ATENOLOL. [Concomitant]
     Active Substance: ATENOLOL
  3. ZOLOFT [Concomitant]
     Active Substance: SERTRALINE HYDROCHLORIDE
  4. SILDENAFIL. [Concomitant]
     Active Substance: SILDENAFIL
  5. SPIRONOLACTONE. [Concomitant]
     Active Substance: SPIRONOLACTONE
  6. ANORO ELLIPTA [Concomitant]
     Active Substance: UMECLIDINIUM BROMIDE\VILANTEROL TRIFENATATE
  7. TORSEMIDE. [Concomitant]
     Active Substance: TORSEMIDE
  8. AMBRISENTAN [Suspect]
     Active Substance: AMBRISENTAN
     Indication: PULMONARY HYPERTENSION
     Dosage: 5 MG, QD
     Route: 048
     Dates: start: 20161013, end: 20180308

REACTIONS (2)
  - Pulmonary hypertension [Fatal]
  - Chronic obstructive pulmonary disease [Fatal]
